FAERS Safety Report 15752410 (Version 1)
Quarter: 2018Q4

REPORT INFORMATION
  Report Type: Report from Study
  Country: JP (occurrence: JP)
  Receive Date: 20181221
  Receipt Date: 20181221
  Transmission Date: 20190205
  Serious: Yes (Hospitalization)
  Sender: FDA-Public Use
  Company Number: JP-PFIZER INC-2018288265

PATIENT
  Age: 63 Year
  Sex: Female
  Weight: 55 kg

DRUGS (10)
  1. RHEUMATREX [METHOTREXATE SODIUM] [Concomitant]
     Indication: RHEUMATOID ARTHRITIS
     Dosage: 8 MG, WEEKLY
     Dates: end: 20160707
  2. TAKEPRON OD [Concomitant]
     Active Substance: LANSOPRAZOLE
     Dosage: UNK
     Route: 048
  3. RECALBON [Concomitant]
     Active Substance: MINODRONIC ACID
     Dosage: UNK
     Route: 048
     Dates: start: 20161110
  4. XELJANZ [Suspect]
     Active Substance: TOFACITINIB CITRATE
     Indication: RHEUMATOID ARTHRITIS
     Dosage: 5 MG, 1X/DAY
     Route: 048
     Dates: start: 20160401, end: 20171229
  5. ISCOTIN [METHANIAZIDE SODIUM] [Concomitant]
     Indication: ANTIBIOTIC PROPHYLAXIS
     Dosage: UNK
     Dates: start: 20160401
  6. HYPEN /00340101/ [Concomitant]
     Active Substance: INDAPAMIDE
     Dosage: UNK
     Route: 048
  7. RHEUMATREX [METHOTREXATE SODIUM] [Concomitant]
     Dosage: 6 MG, WEEKLY
     Dates: start: 20160708, end: 20161005
  8. RHEUMATREX [METHOTREXATE SODIUM] [Concomitant]
     Dosage: 8 MG, WEEKLY
     Dates: start: 20171130
  9. FOLIAMIN [Concomitant]
     Active Substance: FOLIC ACID
     Indication: DRUG TOXICITY PROPHYLAXIS
     Dosage: UNK
     Route: 048
     Dates: start: 20171130
  10. RHEUMATREX [METHOTREXATE SODIUM] [Concomitant]
     Dosage: 4 MG, WEEKLY
     Dates: start: 20161006, end: 20170104

REACTIONS (2)
  - Macular fibrosis [Recovered/Resolved]
  - Cataract [Recovering/Resolving]

NARRATIVE: CASE EVENT DATE: 20180105
